FAERS Safety Report 10572672 (Version 2)
Quarter: 2014Q4

REPORT INFORMATION
  Report Type: Spontaneous
  Country: BR (occurrence: None)
  Receive Date: 20141106
  Receipt Date: 20141212
  Transmission Date: 20150529
  Serious: Yes (Other)
  Sender: FDA-Public Use
  Company Number: 7332414

PATIENT
  Age: 55 Year
  Sex: Female
  Weight: 52 kg

DRUGS (1)
  1. EUTHYROX [Suspect]
     Active Substance: LEVOTHYROXINE SODIUM
     Indication: THYROID HORMONE REPLACEMENT THERAPY

REACTIONS (6)
  - Vascular compression [None]
  - Vulvovaginal discomfort [None]
  - Metastases to pelvis [None]
  - Gastrointestinal carcinoma [None]
  - Hydronephrosis [None]
  - Peripheral swelling [None]

NARRATIVE: CASE EVENT DATE: 201003
